FAERS Safety Report 11152372 (Version 1)
Quarter: 2015Q2

REPORT INFORMATION
  Report Type: Spontaneous
  Country: US (occurrence: None)
  Receive Date: 20150529
  Receipt Date: 20150529
  Transmission Date: 20150821
  Serious: No
  Sender: FDA-Public Use
  Company Number: None

PATIENT
  Sex: Female

DRUGS (1)
  1. HARVONI [Suspect]
     Active Substance: LEDIPASVIR\SOFOSBUVIR
     Indication: HEPATITIS C
     Dosage: THERAPY DATE?FROM 11262015 TO 12 WK THERAPY SO SHOULD BE FINISHED
     Route: 048

REACTIONS (5)
  - Hypertension [None]
  - Pulmonary function test decreased [None]
  - Palpitations [None]
  - Tinnitus [None]
  - Constipation [None]
